FAERS Safety Report 23486768 (Version 2)
Quarter: 2024Q2

REPORT INFORMATION
  Report Type: Spontaneous
  Country: US (occurrence: US)
  Receive Date: 20240206
  Receipt Date: 20240501
  Transmission Date: 20240716
  Serious: Yes (Other)
  Sender: FDA-Public Use
  Company Number: US-PFIZER INC-PV202400016308

PATIENT
  Age: 75 Year
  Sex: Male

DRUGS (1)
  1. INLYTA [Suspect]
     Active Substance: AXITINIB
     Dosage: UNK

REACTIONS (8)
  - Heart rate decreased [Unknown]
  - Muscle atrophy [Unknown]
  - Weight decreased [Recovering/Resolving]
  - Dizziness [Unknown]
  - Cardiac disorder [Unknown]
  - Hypertension [Unknown]
  - Snoring [Unknown]
  - Diarrhoea [Recovering/Resolving]
